FAERS Safety Report 11419680 (Version 5)
Quarter: 2016Q1

REPORT INFORMATION
  Report Type: Report from Study
  Country: EC (occurrence: EC)
  Receive Date: 20150826
  Receipt Date: 20160114
  Transmission Date: 20160525
  Serious: Yes (Hospitalization)
  Sender: FDA-Public Use
  Company Number: PHHY2015EC102545

PATIENT
  Age: 68 Year
  Sex: Male

DRUGS (3)
  1. SANDOSTATIN LAR DEPOT [Suspect]
     Active Substance: OCTREOTIDE ACETATE
     Dosage: 20 MG, EVERY 25 DAYS
     Route: 065
     Dates: start: 20151002
  2. SANDOSTATIN LAR DEPOT [Suspect]
     Active Substance: OCTREOTIDE ACETATE
     Dosage: 20 MG, (EVERY 25 DAYS)
     Route: 030
     Dates: start: 20151222
  3. SANDOSTATIN LAR DEPOT [Suspect]
     Active Substance: OCTREOTIDE ACETATE
     Indication: ACROMEGALY
     Dosage: 20 MG, QMO
     Route: 030
     Dates: start: 20141008

REACTIONS (8)
  - Spinal pain [Not Recovered/Not Resolved]
  - Inappropriate schedule of drug administration [Unknown]
  - Pain [Unknown]
  - Decreased appetite [Not Recovered/Not Resolved]
  - Dizziness [Unknown]
  - Head injury [Unknown]
  - Syncope [Unknown]
  - Headache [Not Recovered/Not Resolved]

NARRATIVE: CASE EVENT DATE: 20150812
